FAERS Safety Report 7211833-0 (Version None)
Quarter: 2011Q1

REPORT INFORMATION
  Report Type: 
  Country: None (occurrence: None)
  Receive Date: 20110105
  Receipt Date: 20101229
  Transmission Date: 20110831
  Serious: Yes (Hospitalization)
  Sender: FDA-Public Use
  Company Number: DE-AMGEN-DEUSP2011000028

PATIENT

DRUGS (6)
  1. LEVOTHYROXINE SODIUM [Concomitant]
  2. ENBREL [Suspect]
     Indication: RHEUMATOID ARTHRITIS
     Dosage: 50 MG, WEEKLY
     Dates: start: 20100414
  3. METHOTREXATE SODIUM [Concomitant]
     Dosage: 15 MG, UNK
  4. PREDNISOLONE [Concomitant]
  5. ENBREL [Suspect]
     Indication: POLYARTHRITIS
  6. QUENSYL [Concomitant]
     Dosage: 100 MG, UNK

REACTIONS (2)
  - UPPER LIMB FRACTURE [None]
  - BLOOD PRESSURE FLUCTUATION [None]
